FAERS Safety Report 8451233-9 (Version None)
Quarter: 2012Q2

REPORT INFORMATION
  Report Type: 
  Country: None (occurrence: None)
  Receive Date: 20120620
  Receipt Date: 20120321
  Transmission Date: 20120825
  Serious: No
  Sender: FDA-Public Use
  Company Number: US-VERTEX PHARMACEUTICALS INC.-AE-2012-001086

PATIENT
  Sex: Male

DRUGS (7)
  1. AMBIEN [Concomitant]
  2. LORTAB [Concomitant]
  3. PEGASYS [Concomitant]
     Indication: HEPATITIS C
     Route: 058
     Dates: start: 20111223
  4. RIBAVIRIN [Concomitant]
     Indication: HEPATITIS C
     Route: 048
     Dates: start: 20111223
  5. LYRICA [Concomitant]
  6. INCIVEK [Suspect]
     Indication: HEPATITIS C
     Route: 048
     Dates: start: 20111223, end: 20120314
  7. TRANXENE [Concomitant]

REACTIONS (7)
  - INAPPROPRIATE SCHEDULE OF DRUG ADMINISTRATION [None]
  - SKIN BURNING SENSATION [None]
  - INSOMNIA [None]
  - RASH GENERALISED [None]
  - DEPRESSED MOOD [None]
  - PRURITUS [None]
  - HEADACHE [None]
